FAERS Safety Report 9905925 (Version 1)
Quarter: 2013Q2

REPORT INFORMATION
  Report Type: Spontaneous
  Country: US (occurrence: None)
  Receive Date: 20130305
  Receipt Date: 20130305
  Transmission Date: 20140414
  Serious: Yes (Other)
  Sender: FDA-Public Use
  Company Number: 163-21880-12041762

PATIENT
  Age: 94 Year
  Sex: Female

DRUGS (11)
  1. REVLIMID (LENALIDOMIDE) (CAPSULES) [Suspect]
     Indication: PLASMA CELL MYELOMA
     Dosage: 5 MG, 14 IN 14 D, PO 29MAR2012 THERAPY TEMPORARITY INTERUPTED
     Route: 048
     Dates: start: 20120329
  2. LOPRESSOR HCT (CO-BETALOC) (UNKNOWN) [Concomitant]
  3. INTEGRA F (INTEGRA F) (UNKNOWN) [Concomitant]
  4. HYDROCHLOROTHIAZIDE (HYDROCHLOROTHIAZIDE) [Concomitant]
  5. QUINAPRIL HCL (QUINAPRIL HYDROCHLORIDE) [Concomitant]
  6. CALCIUM 600 + D (LEVOVIT CA) (UNKNOWN) [Concomitant]
  7. CRANBERRY (AZO CRANBERRY) (UNKNOWN) [Concomitant]
  8. TYLENOL ARTHRITIS PAIN (PARACETAMOL) [Concomitant]
  9. SYNTHROID (LEVOTHYROXINE SODIUM) [Concomitant]
  10. METAMUCIL (METAMUCIL ^PROCTOR + GAMBLE^) [Concomitant]
  11. DEXAMETHASONE (DEXAMETHASONE) [Concomitant]

REACTIONS (2)
  - White blood cell count [None]
  - Full blood count decreased [None]
